FAERS Safety Report 8390609-5 (Version None)
Quarter: 2012Q2

REPORT INFORMATION
  Report Type: 
  Country: None (occurrence: None)
  Receive Date: 20120529
  Receipt Date: 20120521
  Transmission Date: 20120825
  Serious: Yes (Hospitalization)
  Sender: FDA-Public Use
  Company Number: US-BAYER-201026580NA

PATIENT
  Age: 28 Year
  Sex: Female
  Weight: 90.909 kg

DRUGS (10)
  1. PROMETHAZINE [Concomitant]
     Dates: start: 20070312
  2. ASPIRIN [Concomitant]
     Dosage: UNK
     Dates: start: 20070501
  3. HYDROCODONE BITARTRATE AND ACETAMINOPHEN [Concomitant]
     Dosage: 5-500 TAB
     Dates: start: 20070312
  4. ADVIL [Concomitant]
     Dosage: UNK
     Dates: start: 20070501
  5. CELESTONE [Concomitant]
     Dosage: UNK
     Dates: start: 20070501
  6. NAPROXEN (ALEVE) [Concomitant]
     Dosage: UNK
     Dates: start: 20070501
  7. YASMIN [Suspect]
     Indication: ORAL CONTRACEPTION
     Route: 048
     Dates: start: 20070101, end: 20070401
  8. NITROFURANTOIN [Concomitant]
     Dates: start: 20070312
  9. MIRENA [Concomitant]
  10. LORTAB [Concomitant]
     Indication: PAIN

REACTIONS (2)
  - DEEP VEIN THROMBOSIS [None]
  - THROMBOSIS [None]
